FAERS Safety Report 5990070-1 (Version None)
Quarter: 2008Q4

REPORT INFORMATION
  Report Type: 
  Country: None (occurrence: None)
  Receive Date: 20081211
  Receipt Date: 20081204
  Transmission Date: 20090506
  Serious: Yes (Death, Other)
  Sender: FDA-Public Use
  Company Number: US-BRISTOL-MYERS SQUIBB COMPANY-14435861

PATIENT
  Age: 26 Year
  Sex: Female
  Weight: 55 kg

DRUGS (4)
  1. EFAVIRENZ [Suspect]
     Indication: HIV INFECTION
     Route: 048
     Dates: start: 20070314, end: 20080125
  2. STAVUDINE [Suspect]
     Indication: HIV INFECTION
     Route: 048
     Dates: start: 20070314, end: 20080125
  3. LAMIVUDINE [Suspect]
     Indication: HIV INFECTION
     Route: 048
     Dates: start: 20070314, end: 20080125
  4. AKURIT-4 [Suspect]
     Indication: HIV INFECTION
     Dosage: 375/187.5/687.5/100 MG DAILY 09-MAR-2007 TO 07-JUN-2007
     Route: 048
     Dates: start: 20061206, end: 20070308

REACTIONS (7)
  - HYPOAESTHESIA [None]
  - HYPOTONIA [None]
  - LACTIC ACIDOSIS [None]
  - MITOCHONDRIAL TOXICITY [None]
  - REFUSAL OF TREATMENT BY RELATIVE [None]
  - RESPIRATORY DISTRESS [None]
  - VOMITING [None]
